FAERS Safety Report 4277175-0 (Version None)
Quarter: 2004Q1

REPORT INFORMATION
  Report Type: 
  Country: None (occurrence: None)
  Receive Date: 20040120
  Receipt Date: 20040105
  Transmission Date: 20041129
  Serious: Yes (Hospitalization)
  Sender: FDA-Public Use
  Company Number: 02100-JPN-04-0007

PATIENT
  Age: 87 Year
  Sex: Female

DRUGS (2)
  1. CILOSTAZOL [Suspect]
     Dosage: 100 MG; ORAL
     Route: 048
     Dates: start: 20030717, end: 20031218
  2. REBAMIPIDE [Concomitant]

REACTIONS (3)
  - APALLIC SYNDROME [None]
  - CEREBRAL HAEMORRHAGE [None]
  - COMA [None]
